FAERS Safety Report 15644472 (Version 1)
Quarter: 2018Q4

REPORT INFORMATION
  Report Type: Spontaneous
  Country: FR (occurrence: FR)
  Receive Date: 20181121
  Receipt Date: 20181121
  Transmission Date: 20190205
  Serious: Yes (Hospitalization)
  Sender: FDA-Public Use
  Company Number: FR-ELI_LILLY_AND_COMPANY-FR201811008039

PATIENT
  Age: 71 Year
  Sex: Male
  Weight: 53 kg

DRUGS (1)
  1. ALIMTA [Suspect]
     Active Substance: PEMETREXED DISODIUM
     Indication: LUNG ADENOCARCINOMA
     Dosage: 875 MG, UNKNOWN
     Route: 041
     Dates: start: 20180131, end: 20180427

REACTIONS (2)
  - Oesophageal stenosis [Recovering/Resolving]
  - Radiation injury [Recovering/Resolving]

NARRATIVE: CASE EVENT DATE: 201808
